FAERS Safety Report 5512846-7 (Version None)
Quarter: 2007Q4

REPORT INFORMATION
  Report Type: 
  Country: None (occurrence: None)
  Receive Date: 20071112
  Receipt Date: 20071102
  Transmission Date: 20080405
  Serious: Yes (Other)
  Sender: FDA-Public Use
  Company Number: PL-WYE-H01041607

PATIENT
  Sex: Female

DRUGS (1)
  1. EFFEXOR XR [Suspect]
     Indication: MENTAL DISORDER
     Dosage: 75 MG, FREQUENCY NOT SPECIFIED
     Route: 048

REACTIONS (2)
  - BREAST CYST [None]
  - HYPERPROLACTINAEMIA [None]
